FAERS Safety Report 7624116-1 (Version None)
Quarter: 2011Q3

REPORT INFORMATION
  Report Type: 
  Country: None (occurrence: None)
  Receive Date: 20110720
  Receipt Date: 20110714
  Transmission Date: 20111222
  Serious: Yes (Hospitalization, Other)
  Sender: FDA-Public Use
  Company Number: US-PFIZER INC-2011085241

PATIENT
  Sex: Male

DRUGS (7)
  1. ACETYLSALICYLIC ACID [Concomitant]
     Indication: PAIN
     Dosage: UNK
     Dates: start: 20050101
  2. SIMVASTATIN [Concomitant]
     Indication: BLOOD CHOLESTEROL INCREASED
     Dosage: UNK
     Dates: start: 20050101
  3. DOC-Q-LACE [Concomitant]
     Indication: CROHN'S DISEASE
     Dosage: UNK
     Dates: start: 20050101
  4. HYDROCODONE [Concomitant]
     Indication: PAIN
     Dosage: UNK
     Dates: start: 20050101
  5. CHANTIX [Suspect]
     Indication: SMOKING CESSATION THERAPY
     Dosage: UNK
     Dates: start: 20080101, end: 20080201
  6. LISINOPRIL [Concomitant]
     Indication: HYPERTENSION
     Dosage: UNK
     Dates: start: 20050101
  7. NORTRIPTYLINE [Concomitant]
     Indication: INSOMNIA
     Dosage: UNK
     Dates: start: 20060101

REACTIONS (4)
  - SUICIDE ATTEMPT [None]
  - DEPRESSION [None]
  - INSOMNIA [None]
  - ANXIETY [None]
